FAERS Safety Report 10932271 (Version 1)
Quarter: 2015Q1

REPORT INFORMATION
  Report Type: Spontaneous
  Country: US (occurrence: None)
  Receive Date: 20150318
  Receipt Date: 20150318
  Transmission Date: 20150721
  Serious: Yes (Death)
  Sender: FDA-Public Use
  Company Number: INT_00717_2015

PATIENT

DRUGS (3)
  1. 5-FLUOROURACIL [Suspect]
     Active Substance: FLUOROURACIL
     Indication: OESOPHAGEAL CARCINOMA
     Dosage: 650 MG, CONTINUOUS INFUSION ON DAY 1-5 AND 29-33 FOR 2 CYCLES, INTRAVENOUS (NOT OTHERWISE SPECIFIED)
     Route: 042
  2. PACLITAXEL (HQ SPECIALTY) [Suspect]
     Active Substance: PACLITAXEL
     Indication: OESOPHAGEAL CARCINOMA
     Dosage: 200 MG, 2 HOUR INFUSION ON DAY 1 AND 19 FOR 2 CYCLES, INTRAVENOUS (NOT OTHERWISE SPECIFIED)
     Route: 042
  3. CISPLATIN. [Suspect]
     Active Substance: CISPLATIN
     Indication: OESOPHAGEAL CARCINOMA
     Dosage: 15 MG/M2, 1 HOUR INFUSION ON DAY 1-5 AND 29-33 FOR 2 CYCLES, INTRAVENOUS (NOT OTHERWISE SPECIFIED)
     Route: 042

REACTIONS (1)
  - Pneumonia [None]
